FAERS Safety Report 8932381 (Version 1)
Quarter: 2012Q4

REPORT INFORMATION
  Report Type: Report from Study
  Country: US (occurrence: US)
  Receive Date: 20121128
  Receipt Date: 20121128
  Transmission Date: 20130627
  Serious: Yes (Hospitalization)
  Sender: FDA-Public Use
  Company Number: US-009507513-1211USA009047

PATIENT
  Age: 38 Year
  Sex: Female
  Weight: 75.7 kg

DRUGS (14)
  1. TEMODAR [Suspect]
     Indication: GLIOBLASTOMA
     Dosage: 100 mg/m2, D 1-5
     Dates: start: 20110404, end: 20110411
  2. BEVACIZUMAB [Suspect]
     Indication: GLIOBLASTOMA MULTIFORME
     Dosage: 4 mg/Kg, 1 in 2 weeks
     Route: 042
     Dates: start: 20100922, end: 20110509
  3. BEVACIZUMAB [Suspect]
     Dosage: 10 mg/Kg, 1 in 2 weeks
     Route: 042
     Dates: start: 20100922
  4. ERLOTINIB HYDROCHLORIDE [Suspect]
     Indication: GLIOBLASTOMA
     Dosage: 400 mg, qd
     Dates: start: 20110428, end: 20110508
  5. BENADRYL [Concomitant]
     Dosage: 25 mg, qd
     Dates: start: 20110416
  6. KEPPRA [Concomitant]
     Dosage: 1500 mg, qd
     Dates: start: 20110426
  7. ELAVIL (AMITRIPTYLINE HYDROCHLORIDE) [Concomitant]
     Dosage: 20 mg, qd
     Dates: start: 20110131
  8. PAXIL [Concomitant]
     Dosage: 30 mg, qd
  9. IMODIUM [Concomitant]
     Dosage: 2 mg, qd
     Dates: start: 20101220
  10. ZOFRAN [Concomitant]
     Dosage: 8 mg, qd
     Dates: start: 20100909
  11. HEMP [Concomitant]
     Dosage: UNK, prn
     Dates: start: 20110131
  12. DILANTIN [Concomitant]
     Dosage: 230 mg, UNK
     Dates: start: 20110308
  13. COMPAZINE [Concomitant]
     Dosage: 50 mg, UNK
     Dates: start: 20110405
  14. METHADONE HYDROCHLORIDE [Concomitant]
     Dosage: 10 mg, UNK
     Dates: start: 20110425

REACTIONS (3)
  - Dehydration [Recovered/Resolved]
  - Nausea [Recovered/Resolved]
  - Vomiting [Recovered/Resolved]
